FAERS Safety Report 15932484 (Version 18)
Quarter: 2023Q4

REPORT INFORMATION
  Report Type: Report from Study
  Country: ES (occurrence: ES)
  Receive Date: 20190207
  Receipt Date: 20231113
  Transmission Date: 20240109
  Serious: Yes (Hospitalization, Other)
  Sender: FDA-Public Use
  Company Number: ES-SA-2019SA030693

PATIENT
  Age: 39 Year
  Sex: Female

DRUGS (4)
  1. ALEMTUZUMAB [Suspect]
     Active Substance: ALEMTUZUMAB
     Indication: Relapsing multiple sclerosis
     Dosage: 12 MG, QD
     Route: 041
     Dates: start: 20181210, end: 20181212
  2. ALEMTUZUMAB [Suspect]
     Active Substance: ALEMTUZUMAB
     Indication: Relapsing multiple sclerosis
     Dosage: 12 MG, QD
     Route: 041
     Dates: start: 20161128, end: 20161202
  3. ALEMTUZUMAB [Suspect]
     Active Substance: ALEMTUZUMAB
     Dosage: 12 MG, QD
     Route: 041
     Dates: start: 20171127, end: 20171129
  4. ALEMTUZUMAB [Suspect]
     Active Substance: ALEMTUZUMAB
     Route: 065

REACTIONS (16)
  - Haemolytic anaemia [Recovering/Resolving]
  - Multiple sclerosis relapse [Recovered/Resolved]
  - Graves^ disease [Recovered/Resolved]
  - Oral herpes [Recovering/Resolving]
  - Diabetic ketoacidosis [Recovering/Resolving]
  - Micturition urgency [Recovering/Resolving]
  - Dysphonia [Recovering/Resolving]
  - Vertigo [Recovering/Resolving]
  - Urinary incontinence [Recovering/Resolving]
  - Headache [Recovering/Resolving]
  - Urinary tract infection [Recovered/Resolved]
  - Urinary tract infection [Recovered/Resolved]
  - Anaemia [Recovered/Resolved]
  - Heavy menstrual bleeding [Recovered/Resolved]
  - Influenza [Recovered/Resolved]
  - Hyperthyroidism [Recovered/Resolved]

NARRATIVE: CASE EVENT DATE: 20161219
